FAERS Safety Report 8916473 (Version 2)
Quarter: 2013Q2

REPORT INFORMATION
  Report Type: Spontaneous
  Country: US (occurrence: US)
  Receive Date: 20121120
  Receipt Date: 20130401
  Transmission Date: 20140414
  Serious: No
  Sender: FDA-Public Use
  Company Number: US-ASTRAZENECA-2012SE85082

PATIENT
  Age: 71 Year
  Sex: Male
  Weight: 76.2 kg

DRUGS (1)
  1. SEROQUEL XR [Suspect]
     Indication: BIPOLAR DISORDER
     Route: 048
     Dates: start: 2012, end: 20121105

REACTIONS (6)
  - Anxiety [Unknown]
  - Hallucination [Unknown]
  - Nausea [Unknown]
  - Adverse reaction [Unknown]
  - Drug dose omission [Unknown]
  - Off label use [Unknown]
